FAERS Safety Report 15224995 (Version 4)
Quarter: 2018Q4

REPORT INFORMATION
  Report Type: Report from Study
  Country: US (occurrence: US)
  Receive Date: 20180801
  Receipt Date: 20181026
  Transmission Date: 20190204
  Serious: Yes (Death, Other)
  Sender: FDA-Public Use
  Company Number: US-ASTRAZENECA-2017SE68866

PATIENT
  Age: 28336 Day
  Sex: Female
  Weight: 45.4 kg

DRUGS (15)
  1. TAGRISSO [Suspect]
     Active Substance: OSIMERTINIB
     Indication: NON-SMALL CELL LUNG CANCER
     Route: 048
     Dates: start: 20180831, end: 20180918
  2. VICODIN [Concomitant]
     Active Substance: ACETAMINOPHEN\HYDROCODONE BITARTRATE
     Dosage: 5 MG-300MG TABLET
  3. TAGRISSO [Suspect]
     Active Substance: OSIMERTINIB
     Indication: LUNG CARCINOMA CELL TYPE UNSPECIFIED STAGE 0
     Route: 048
     Dates: start: 20180104
  4. TAGRISSO [Suspect]
     Active Substance: OSIMERTINIB
     Indication: LUNG CARCINOMA CELL TYPE UNSPECIFIED STAGE 0
     Route: 048
     Dates: start: 20180831, end: 20180918
  5. ATENOLOL. [Suspect]
     Active Substance: ATENOLOL
     Dosage: 100.0MG UNKNOWN
     Route: 048
  6. TARCEVA [Concomitant]
     Active Substance: ERLOTINIB HYDROCHLORIDE
     Dates: start: 201311, end: 201706
  7. TAGRISSO [Suspect]
     Active Substance: OSIMERTINIB
     Indication: GENE MUTATION
     Route: 048
     Dates: start: 20170516
  8. TAGRISSO [Suspect]
     Active Substance: OSIMERTINIB
     Indication: GENE MUTATION
     Route: 048
     Dates: start: 20180831, end: 20180918
  9. OMEPRAZOLE-SODIUM BICARBONATE [Suspect]
     Active Substance: OMEPRAZOLE\SODIUM BICARBONATE
     Dosage: NON-AZ
     Route: 065
  10. TAGRISSO [Suspect]
     Active Substance: OSIMERTINIB
     Indication: NON-SMALL CELL LUNG CANCER
     Route: 048
     Dates: start: 20180104
  11. TAGRISSO [Suspect]
     Active Substance: OSIMERTINIB
     Indication: GENE MUTATION
     Route: 048
     Dates: start: 20180104
  12. IBUPROFEN. [Concomitant]
     Active Substance: IBUPROFEN
  13. BUSPAR [Concomitant]
     Active Substance: BUSPIRONE HYDROCHLORIDE
  14. TAGRISSO [Suspect]
     Active Substance: OSIMERTINIB
     Indication: LUNG CARCINOMA CELL TYPE UNSPECIFIED STAGE 0
     Route: 048
     Dates: start: 20170516
  15. TAGRISSO [Suspect]
     Active Substance: OSIMERTINIB
     Indication: NON-SMALL CELL LUNG CANCER
     Route: 048
     Dates: start: 20170516

REACTIONS (13)
  - Flatulence [Unknown]
  - Abdominal distension [Unknown]
  - Diarrhoea [Unknown]
  - Dyspepsia [Unknown]
  - Cardiac failure [Unknown]
  - Death [Fatal]
  - Intentional product misuse [Unknown]
  - Drug ineffective [Unknown]
  - Gallbladder rupture [Unknown]
  - Lung neoplasm malignant [Unknown]
  - Oedema peripheral [Recovered/Resolved]
  - Malignant neoplasm progression [Unknown]
  - Metastases to central nervous system [Unknown]

NARRATIVE: CASE EVENT DATE: 20170620
